FAERS Safety Report 15374847 (Version 17)
Quarter: 2020Q4

REPORT INFORMATION
  Report Type: Spontaneous
  Country: FR (occurrence: FR)
  Receive Date: 20180912
  Receipt Date: 20201209
  Transmission Date: 20210113
  Serious: Yes (Hospitalization, Other)
  Sender: FDA-Public Use
  Company Number: FR-PFIZER INC-2018367204

PATIENT
  Age: 23 Year
  Sex: Male
  Weight: 49 kg

DRUGS (26)
  1. AERIUS [EBASTINE] [Suspect]
     Active Substance: EBASTINE
     Indication: RASH
     Dosage: 1 DF, QD (GENERIC REPORTED AS EBASTINE)
     Route: 048
     Dates: start: 20090107
  2. TIENAM [Suspect]
     Active Substance: CILASTATIN SODIUM\IMIPENEM
     Indication: ABSCESS
     Dosage: DRUG START PERIOD15 (DAYS)
     Route: 042
     Dates: start: 20081222, end: 20090112
  3. ALANINE [Suspect]
     Active Substance: ALANINE
     Indication: MALNUTRITION
     Dosage: 4000 ML, DAILY
     Route: 041
     Dates: start: 20081228, end: 20090207
  4. TRIFLUCAN [Suspect]
     Active Substance: FLUCONAZOLE
     Dosage: 200 MG, 1X/DAY
     Route: 048
     Dates: start: 20090119, end: 20090130
  5. VANCOMYCIN HCL [Suspect]
     Active Substance: VANCOMYCIN HYDROCHLORIDE
     Indication: ABSCESS
     Dosage: 2 G, 1X/DAY
     Route: 042
     Dates: start: 20081220, end: 20090112
  6. TRIFLUCAN [Suspect]
     Active Substance: FLUCONAZOLE
     Indication: RASH
     Dosage: 100 MG, 1X/DAY
     Route: 048
     Dates: start: 20090119
  7. LOVENOX [Suspect]
     Active Substance: ENOXAPARIN SODIUM
     Dosage: 1 DF, 1X/DAY
     Route: 058
     Dates: start: 20081224
  8. LEKOVIT CA [Suspect]
     Active Substance: CALCIUM CARBONATE\CHOLECALCIFEROL
     Dosage: 1 DF, 1X/DAY
     Route: 048
     Dates: start: 20081227
  9. VANCOMYCIN HCL [Suspect]
     Active Substance: VANCOMYCIN HYDROCHLORIDE
     Dosage: 32 G, 1X/DAY (DRUG START PERIOD17 (DAYS), DRUG LAST PERIOD07 (DAYS))
     Route: 042
     Dates: start: 20081220, end: 20090112
  10. PRIMAXIN IV [Suspect]
     Active Substance: CILASTATIN SODIUM\IMIPENEM
     Indication: ABSCESS
     Dosage: DRUG START PERIOD15 (DAYS)
     Route: 042
     Dates: start: 20081222, end: 20090112
  11. ALANINE [Suspect]
     Active Substance: ALANINE
     Indication: PARENTERAL NUTRITION
  12. CACIT [CALCIUM CARBONATE;CITRIC ACID] [Suspect]
     Active Substance: CALCIUM CARBONATE\CITRIC ACID MONOHYDRATE
     Dosage: UNK, 1X/DAY
     Route: 048
     Dates: start: 20081227
  13. CALCIUM CARBONATE. [Suspect]
     Active Substance: CALCIUM CARBONATE
     Dosage: 1 DF, DAILY (DRUG START PERIOD10 (DAYS)
     Route: 048
     Dates: start: 20081227
  14. AERIUS (DESLORATADINE) [Suspect]
     Active Substance: DESLORATADINE
     Indication: RASH
     Dosage: 1 DF, 1X/DAY
     Route: 048
     Dates: start: 20090107
  15. SOLU-MEDROL [Suspect]
     Active Substance: METHYLPREDNISOLONE SODIUM SUCCINATE
     Indication: CROHN^S DISEASE
     Dosage: 100 MG, UNK
     Route: 042
     Dates: start: 20090120
  16. SPECIAFOLDINE [Suspect]
     Active Substance: FOLIC ACID
     Dosage: 3 DF, QD (DRUG START PERIOD14 (DAYS))
     Route: 048
     Dates: start: 20081223
  17. PEVARYL [Suspect]
     Active Substance: ECONAZOLE NITRATE
     Indication: RASH
     Dosage: 2 DF, UNK
     Route: 061
     Dates: start: 20090114
  18. STRUCTOKABIVEN [Suspect]
     Active Substance: AMINO ACIDS\DEXTROSE\ELECTROLYTES NOS
     Indication: MALNUTRITION
     Dosage: 4000 ML, 1X/DAY (DRUG START PERIOD9DAYS, LIPID EMULSION)
     Route: 041
     Dates: start: 20081228, end: 20090207
  19. STRUCTOKABIVEN [Suspect]
     Active Substance: AMINO ACIDS\DEXTROSE\ELECTROLYTES NOS
     Indication: PARENTERAL NUTRITION
     Dosage: LIPID EMULSIONDRUG START PERIOD9(DAYS)
     Route: 065
  20. METHYLPREDNISOLONE SODIUM SUCCINATE. [Suspect]
     Active Substance: METHYLPREDNISOLONE SODIUM SUCCINATE
     Indication: CROHN^S DISEASE
     Dosage: UNK
     Route: 042
     Dates: start: 20081112, end: 20091112
  21. SOLU-MEDROL [Suspect]
     Active Substance: METHYLPREDNISOLONE SODIUM SUCCINATE
     Indication: CROHN^S DISEASE
     Dosage: 60 MG, UNK (DRUG START PERIOD148 (DAYS))
     Route: 048
     Dates: start: 20080811
  22. VANCOMYCIN HCL [Suspect]
     Active Substance: VANCOMYCIN HYDROCHLORIDE
     Dosage: 2 G, 1X/DAY (DRUG START PERIOD17(DAYS) DRUG LAST PERIOD07 (DAYS))
     Route: 042
     Dates: start: 20081222, end: 20090112
  23. REMICADE [Suspect]
     Active Substance: INFLIXIMAB
     Indication: CROHN^S DISEASE
     Dosage: 100 MG, UNK
     Route: 042
     Dates: start: 20090120
  24. METHYLPREDNISOLONE SODIUM SUCCINATE. [Suspect]
     Active Substance: METHYLPREDNISOLONE SODIUM SUCCINATE
     Indication: ABSCESS
     Dosage: 100 MG, UNK
     Route: 042
     Dates: start: 20090120
  25. TRANXENE [Suspect]
     Active Substance: CLORAZEPATE DIPOTASSIUM
     Indication: ANXIETY
     Dosage: 1 DF, QD
     Route: 042
     Dates: start: 20081222, end: 20090123
  26. CALCIUM CHOLECALCIFEROL BERES [Suspect]
     Active Substance: CALCIUM CARBONATE\CHOLECALCIFEROL
     Dosage: UNK, 1X/DAY
     Route: 048

REACTIONS (4)
  - Weight decreased [Unknown]
  - Off label use [Unknown]
  - Hepatitis [Recovering/Resolving]
  - Malassezia infection [Unknown]

NARRATIVE: CASE EVENT DATE: 20080811
